FAERS Safety Report 21638544 (Version 6)
Quarter: 2023Q1

REPORT INFORMATION
  Report Type: Report from Study
  Country: US (occurrence: US)
  Receive Date: 20221124
  Receipt Date: 20230314
  Transmission Date: 20230418
  Serious: No
  Sender: FDA-Public Use
  Company Number: US-002147023-NVSC2022US264020

PATIENT
  Age: 28 Year
  Sex: Female

DRUGS (4)
  1. GLATOPA [Suspect]
     Active Substance: GLATIRAMER ACETATE
     Indication: Multiple sclerosis
     Dosage: 40 MG (FREQUENCY: EVERY 72 HOURS)
     Route: 058
     Dates: start: 20221121
  2. GLATOPA [Suspect]
     Active Substance: GLATIRAMER ACETATE
     Dosage: 40 MG, Q48H
     Route: 058
     Dates: start: 20221205
  3. GLATOPA [Suspect]
     Active Substance: GLATIRAMER ACETATE
     Dosage: 40 MG
     Route: 065
  4. GLATOPA [Suspect]
     Active Substance: GLATIRAMER ACETATE
     Dosage: 40 MG (EVERY 48 HOURS)
     Route: 058
     Dates: start: 20221130

REACTIONS (7)
  - Injection site haemorrhage [Unknown]
  - Injection site swelling [Unknown]
  - Flushing [Recovered/Resolved]
  - Illness [Unknown]
  - Vomiting [Unknown]
  - Accidental exposure to product [Unknown]
  - Wrong technique in device usage process [Unknown]

NARRATIVE: CASE EVENT DATE: 20221121
